FAERS Safety Report 8200533-6 (Version None)
Quarter: 2012Q1

REPORT INFORMATION
  Report Type: 
  Country: None (occurrence: None)
  Receive Date: 20120312
  Receipt Date: 20120301
  Transmission Date: 20120608
  Serious: Yes (Hospitalization)
  Sender: FDA-Public Use
  Company Number: US-GENZYME-THYM-1003070

PATIENT
  Sex: Male
  Weight: 135 kg

DRUGS (1)
  1. THYMOGLOBULIN [Suspect]
     Indication: CHRONIC LYMPHOCYTIC LEUKAEMIA
     Dosage: 1.7 MG/KG, QD
     Route: 042
     Dates: start: 20111114, end: 20111116

REACTIONS (4)
  - VOMITING [None]
  - DIARRHOEA [None]
  - CYSTITIS HAEMORRHAGIC [None]
  - NAUSEA [None]
